FAERS Safety Report 6885272-6 (Version None)
Quarter: 2010Q3

REPORT INFORMATION
  Report Type: 
  Country: None (occurrence: None)
  Receive Date: 20100729
  Receipt Date: 20100729
  Transmission Date: 20110219
  Serious: Yes (Other)
  Sender: FDA-Public Use
  Company Number: None

PATIENT
  Sex: Female
  Weight: 90.7194 kg

DRUGS (2)
  1. DEMEROL [Suspect]
     Indication: INCISIONAL HERNIA, OBSTRUCTIVE
     Dates: start: 20100701, end: 20100701
  2. DEMEROL [Suspect]
     Indication: LAPAROSCOPIC SURGERY
     Dates: start: 20100701, end: 20100701

REACTIONS (4)
  - INFUSION SITE ERYTHEMA [None]
  - INFUSION SITE INDURATION [None]
  - INFUSION SITE PRURITUS [None]
  - INFUSION SITE SWELLING [None]
